FAERS Safety Report 6226289-4 (Version None)
Quarter: 2009Q2

REPORT INFORMATION
  Report Type: 
  Country: None (occurrence: None)
  Receive Date: 20090612
  Receipt Date: 20090512
  Transmission Date: 20091009
  Serious: No
  Sender: FDA-Public Use
  Company Number: US-ABBOTT-09P-163-0573214-00

PATIENT
  Sex: Female
  Weight: 102.15 kg

DRUGS (18)
  1. HUMIRA [Suspect]
     Indication: PSORIASIS
     Route: 058
     Dates: start: 20070101, end: 20070301
  2. HUMIRA [Suspect]
     Indication: PSORIATIC ARTHROPATHY
     Route: 058
     Dates: start: 20070301, end: 20090323
  3. HUMIRA [Suspect]
     Dates: start: 20090427
  4. LEVOTHYROXINE [Concomitant]
     Indication: HYPOTHYROIDISM
     Route: 048
  5. NEXIUM [Concomitant]
     Indication: GASTROOESOPHAGEAL REFLUX DISEASE
     Route: 048
  6. NEXIUM [Concomitant]
     Indication: GASTRITIS
  7. LEXAPRO [Concomitant]
     Indication: DEPRESSION
     Route: 048
  8. LEXAPRO [Concomitant]
     Indication: PAIN
  9. BONIVA [Concomitant]
     Indication: OSTEOPOROSIS
  10. FLEXERIL [Concomitant]
     Indication: MUSCLE SPASMS
     Route: 048
  11. MERIPEX [Concomitant]
     Indication: RESTLESS LEGS SYNDROME
     Route: 048
  12. LORTAB [Concomitant]
     Indication: PAIN
     Dosage: UP TO TIMES A DAY AS NEEDED
  13. REGLAN [Concomitant]
     Indication: NAUSEA
     Dosage: EVERY EIGHT HOURS AS NEEDED
  14. HYOSCYAMINE [Concomitant]
     Indication: ABDOMINAL PAIN
     Dosage: EVERY FOUR TO SIX HOURS AS NEEDED
  15. LEFLUNOMIDE [Concomitant]
     Indication: PSORIATIC ARTHROPATHY
     Route: 048
  16. PREMARIN [Concomitant]
     Indication: HORMONE REPLACEMENT THERAPY
     Route: 048
  17. LIDODERM [Concomitant]
     Indication: BACK PAIN
     Dosage: 3 TIMES A DAY AS NEEDED
     Route: 062
  18. VITAMIN D [Concomitant]
     Indication: MEDICAL DIET

REACTIONS (11)
  - BRONCHITIS [None]
  - DRUG INEFFECTIVE [None]
  - EAR DISCOMFORT [None]
  - EAR PAIN [None]
  - EUSTACHIAN TUBE OBSTRUCTION [None]
  - HERPES ZOSTER [None]
  - OROPHARYNGEAL PAIN [None]
  - SINUSITIS [None]
  - STOMATITIS [None]
  - SWELLING FACE [None]
  - TONSILLITIS [None]
